FAERS Safety Report 15423221 (Version 2)
Quarter: 2018Q4

REPORT INFORMATION
  Report Type: Spontaneous
  Country: JP (occurrence: JP)
  Receive Date: 20180925
  Receipt Date: 20181011
  Transmission Date: 20190204
  Serious: Yes (Death)
  Sender: FDA-Public Use
  Company Number: JP-NAPPMUNDI-GBR-2018-0059601

PATIENT
  Sex: Male

DRUGS (2)
  1. OXIFAST [Suspect]
     Active Substance: OXYCODONE
     Indication: CANCER PAIN
     Dosage: 30 MG, DAILY
     Route: 042
  2. OXIFAST [Suspect]
     Active Substance: OXYCODONE
     Dosage: 40 MG, DAILY
     Route: 042
     Dates: start: 201808, end: 201808

REACTIONS (2)
  - Pancreatic carcinoma [Fatal]
  - Somnolence [Recovered/Resolved]

NARRATIVE: CASE EVENT DATE: 201808
